FAERS Safety Report 12531272 (Version 3)
Quarter: 2016Q3

REPORT INFORMATION
  Report Type: Spontaneous
  Country: US (occurrence: US)
  Receive Date: 20160706
  Receipt Date: 20160907
  Transmission Date: 20161109
  Serious: No
  Sender: FDA-Public Use
  Company Number: US-JNJFOC-20160702412

PATIENT
  Sex: Female
  Weight: 72.58 kg

DRUGS (4)
  1. DURAGESIC [Suspect]
     Active Substance: FENTANYL
     Indication: INTERVERTEBRAL DISC PROTRUSION
     Dosage: STOPPED IN 2016
     Route: 062
     Dates: end: 2016
  2. DURAGESIC [Suspect]
     Active Substance: FENTANYL
     Indication: INTERVERTEBRAL DISC PROTRUSION
     Route: 062
  3. DURAGESIC [Suspect]
     Active Substance: FENTANYL
     Indication: INTERVERTEBRAL DISC PROTRUSION
     Dosage: STOPPED IN 2016
     Route: 062
     Dates: end: 2016
  4. DURAGESIC [Suspect]
     Active Substance: FENTANYL
     Indication: INTERVERTEBRAL DISC PROTRUSION
     Dosage: STOPPED IN PREVIOUS YEARS FROM THE TIME OF REPORT
     Route: 062
     Dates: start: 2013

REACTIONS (7)
  - Drug dose omission [Unknown]
  - Withdrawal syndrome [Unknown]
  - Pain [Unknown]
  - Wrong technique in product usage process [Unknown]
  - Hyperhidrosis [Unknown]
  - Product adhesion issue [Unknown]
  - Adverse event [Unknown]

NARRATIVE: CASE EVENT DATE: 2016
